APPROVED DRUG PRODUCT: CITALOPRAM HYDROBROMIDE
Active Ingredient: CITALOPRAM HYDROBROMIDE
Strength: EQ 40MG BASE
Dosage Form/Route: TABLET;ORAL
Application: A077278 | Product #003
Applicant: TARO PHARMACEUTICAL INDUSTRIES LTD
Approved: Mar 22, 2006 | RLD: No | RS: No | Type: DISCN